FAERS Safety Report 16050992 (Version 2)
Quarter: 2020Q2

REPORT INFORMATION
  Report Type: Spontaneous
  Country: US (occurrence: US)
  Receive Date: 20190308
  Receipt Date: 20200422
  Transmission Date: 20200713
  Serious: Yes (Hospitalization, Other)
  Sender: FDA-Public Use
  Company Number: US-GLAXOSMITHKLINE-US2019GSK042641

PATIENT
  Sex: Female

DRUGS (6)
  1. LAMICTAL [Suspect]
     Active Substance: LAMOTRIGINE
     Indication: BIPOLAR DISORDER
     Dosage: UNK
     Route: 065
  2. LAMICTAL [Suspect]
     Active Substance: LAMOTRIGINE
     Indication: MOOD SWINGS
  3. LAMICTAL [Suspect]
     Active Substance: LAMOTRIGINE
     Indication: AGGRESSION
  4. LAMICTAL [Suspect]
     Active Substance: LAMOTRIGINE
     Indication: DEPRESSION
     Dosage: 25 MG, BID
     Route: 065
  5. LAMICTAL [Suspect]
     Active Substance: LAMOTRIGINE
     Indication: IRRITABILITY
  6. LAMICTAL [Suspect]
     Active Substance: LAMOTRIGINE
     Indication: MOOD SWINGS

REACTIONS (11)
  - Rash papular [Unknown]
  - Stevens-Johnson syndrome [Unknown]
  - Eye disorder [Unknown]
  - Rash macular [Unknown]
  - Rash [Unknown]
  - Oedema mouth [Unknown]
  - Blister [Unknown]
  - Scar [Unknown]
  - Face oedema [Unknown]
  - Pruritus [Unknown]
  - Dry eye [Unknown]
